FAERS Safety Report 8265777-6 (Version None)
Quarter: 2012Q2

REPORT INFORMATION
  Report Type: 
  Country: None (occurrence: None)
  Receive Date: 20120406
  Receipt Date: 20120326
  Transmission Date: 20120825
  Serious: Yes (Other)
  Sender: FDA-Public Use
  Company Number: PHHY2012JP027769

PATIENT
  Age: 20 Year
  Sex: Female

DRUGS (1)
  1. ZADITEN [Suspect]

REACTIONS (2)
  - PHARYNGEAL OEDEMA [None]
  - WRONG TECHNIQUE IN DRUG USAGE PROCESS [None]
